FAERS Safety Report 16771925 (Version 1)
Quarter: 2019Q4

REPORT INFORMATION
  Report Type: Spontaneous
  Country: US (occurrence: US)
  Receive Date: 20190903
  Receipt Date: 20190903
  Transmission Date: 20200122
  Serious: Yes (Other)
  Sender: FDA-Public Use
  Company Number: None

PATIENT
  Sex: Male

DRUGS (2)
  1. BUPRENORPHINE/NALAXONE TABLETS [Suspect]
     Active Substance: BUPRENORPHINE HYDROCHLORIDE\NALOXONE HYDROCHLORIDE
     Indication: DRUG DEPENDENCE
     Route: 048
     Dates: start: 20190827, end: 20190903
  2. BUPRENORPHINE NALOXONE 8-MG TABLETS [Suspect]
     Active Substance: BUPRENORPHINE\NALOXONE
     Dates: start: 20190827, end: 20190903

REACTIONS (5)
  - Product use complaint [None]
  - Therapeutic product effect incomplete [None]
  - Retching [None]
  - Aptyalism [None]
  - Vomiting [None]
